FAERS Safety Report 9360949 (Version 1)
Quarter: 2013Q2

REPORT INFORMATION
  Report Type: Spontaneous
  Country: TW (occurrence: TW)
  Receive Date: 20130621
  Receipt Date: 20130621
  Transmission Date: 20140414
  Serious: Yes (Other)
  Sender: FDA-Public Use
  Company Number: TW-COVIDIEN/TYCO HEALTHCARE/MALLINCKRODT-T201303383

PATIENT
  Age: 76 Year
  Sex: Female

DRUGS (2)
  1. OPTIRAY [Suspect]
     Indication: ARTERIOGRAM CORONARY
     Dosage: 150 ML, SINGLE
     Route: 013
  2. HEPARINE                           /00027701/ [Concomitant]
     Indication: PERCUTANEOUS CORONARY INTERVENTION
     Route: 042

REACTIONS (1)
  - Contrast encephalopathy [Recovered/Resolved]
